FAERS Safety Report 17521168 (Version 7)
Quarter: 2020Q2

REPORT INFORMATION
  Report Type: Report from Study
  Country: ES (occurrence: ES)
  Receive Date: 20200310
  Receipt Date: 20200427
  Transmission Date: 20200713
  Serious: Yes (Hospitalization)
  Sender: FDA-Public Use
  Company Number: ES-EISAI MEDICAL RESEARCH-EC-2020-071496

PATIENT
  Age: 64 Year
  Sex: Female

DRUGS (8)
  1. LENVATINIB [Suspect]
     Active Substance: LENVATINIB
     Indication: HEPATOBILIARY CANCER
     Route: 048
     Dates: start: 20191018, end: 20200303
  2. PEMBROLIZUMAB. [Suspect]
     Active Substance: PEMBROLIZUMAB
     Route: 041
     Dates: start: 20200131, end: 20200131
  3. AMLODIPINE [Concomitant]
     Active Substance: AMLODIPINE BESYLATE
     Dates: start: 20191011
  4. PEMBROLIZUMAB. [Suspect]
     Active Substance: PEMBROLIZUMAB
     Indication: HEPATOBILIARY CANCER
     Route: 041
     Dates: start: 20191018, end: 20200110
  5. LIZIPAINA [Concomitant]
     Active Substance: BACITRACIN\LYSOZYME HYDROCHLORIDE\PAPAIN
     Dates: start: 20191228
  6. LENVATINIB [Suspect]
     Active Substance: LENVATINIB
     Route: 048
     Dates: start: 20200331
  7. ENALAPRIL [Concomitant]
     Active Substance: ENALAPRIL
     Dates: start: 20191029
  8. FUROSEMIDE. [Concomitant]
     Active Substance: FUROSEMIDE
     Dates: start: 20191029

REACTIONS (2)
  - Ischaemic stroke [Recovered/Resolved with Sequelae]
  - Upper gastrointestinal haemorrhage [Recovered/Resolved]

NARRATIVE: CASE EVENT DATE: 20200303
